FAERS Safety Report 18256412 (Version 1)
Quarter: 2020Q3

REPORT INFORMATION
  Report Type: Spontaneous
  Country: US (occurrence: US)
  Receive Date: 20200910
  Receipt Date: 20200910
  Transmission Date: 20201103
  Serious: Yes (Hospitalization)
  Sender: FDA-Public Use
  Company Number: None

PATIENT
  Age: 60 Year
  Sex: Female

DRUGS (11)
  1. AMLODIPINE [Concomitant]
     Active Substance: AMLODIPINE BESYLATE
  2. LIDO/PRILOCN [Concomitant]
  3. OZEMPIC [Suspect]
     Active Substance: SEMAGLUTIDE
     Indication: TYPE 2 DIABETES MELLITUS
     Dosage: ?          OTHER FREQUENCY:WEEKLY;?
     Route: 058
     Dates: start: 20200410
  4. MORPHINE SULF [Concomitant]
     Active Substance: MORPHINE SULFATE
  5. CAPECITABINE. [Suspect]
     Active Substance: CAPECITABINE
     Indication: NEOPLASM MALIGNANT
     Dosage: ?          OTHER FREQUENCY:DAILY 7 DAY CYCLE;?
     Route: 049
     Dates: start: 20200109
  6. PRAVASTATIN. [Concomitant]
     Active Substance: PRAVASTATIN
  7. IBUPROFEN. [Concomitant]
     Active Substance: IBUPROFEN
  8. LOSARTAN. [Concomitant]
     Active Substance: LOSARTAN
  9. OXYBUTRIN [Concomitant]
     Active Substance: OXYBUTYNIN
  10. HYDROCO/APAP [Concomitant]
     Active Substance: ACETAMINOPHEN\HYDROCODONE
  11. ISOSORB MONO [Concomitant]
     Active Substance: ISOSORBIDE MONONITRATE

REACTIONS (1)
  - Renal failure [None]

NARRATIVE: CASE EVENT DATE: 20200829
